FAERS Safety Report 7228756 (Version 7)
Quarter: 2013Q4

REPORT INFORMATION
  Report Type: Spontaneous
  Country: US (occurrence: US)
  Receive Date: 20091223
  Receipt Date: 20131125
  Transmission Date: 20140711
  Serious: Yes (Other)
  Sender: FDA-Public Use
  Company Number: US-BAYER-200943267NA

PATIENT
  Age: 23 Year
  Sex: Female
  Weight: 64 kg

DRUGS (15)
  1. YAZ [Suspect]
     Indication: CONTRACEPTION
     Route: 048
  2. YASMIN [Suspect]
     Indication: CONTRACEPTION
     Route: 048
     Dates: start: 200210, end: 20080908
  3. OCELLA [Suspect]
     Indication: PREMENSTRUAL SYNDROME
     Route: 048
     Dates: start: 200812, end: 20090817
  4. OCELLA [Suspect]
     Indication: CONTRACEPTION
  5. TYLENOL [Concomitant]
     Route: 048
  6. ADVIL [Concomitant]
     Route: 048
  7. TRAMADOL [Concomitant]
     Dosage: QD-PRN
     Route: 048
  8. ULTRAM ER [Concomitant]
     Indication: BACK PAIN
     Dosage: 100 MG, QD
     Route: 048
     Dates: start: 20071101
  9. ACETAMINOPHEN W/PROPOXYPHENE [Concomitant]
     Indication: PAIN
     Dosage: UNK UNK, PRN
     Route: 048
     Dates: start: 20071203
  10. HYDROCODONE W/APAP [Concomitant]
     Indication: PAIN
     Dosage: UNK UNK, PRN
     Route: 048
     Dates: start: 20071123
  11. SERTRALINE [Concomitant]
     Indication: ANXIETY
     Dosage: 50 MG, QD
     Route: 048
     Dates: start: 20071109
  12. SERTRALINE [Concomitant]
     Indication: DEPRESSION
  13. ZEGERID [Concomitant]
     Dosage: UNK
     Route: 048
     Dates: start: 20071114
  14. EXCEDRIN IB [Concomitant]
     Indication: MIGRAINE
     Dosage: UNK
     Dates: start: 2002
  15. CORTISOL [Concomitant]
     Indication: THYROID DISORDER
     Dosage: UNK
     Dates: start: 2002

REACTIONS (4)
  - Biliary dyskinesia [None]
  - Pain [None]
  - Gallbladder cholesterolosis [None]
  - Cholecystectomy [None]
